FAERS Safety Report 4424746-4 (Version None)
Quarter: 2004Q3

REPORT INFORMATION
  Report Type: 
  Country: None (occurrence: None)
  Receive Date: 20040719
  Receipt Date: 20030723
  Transmission Date: 20050211
  Serious: Yes (Hospitalization)
  Sender: FDA-Public Use
  Company Number: 176278

PATIENT
  Sex: Female

DRUGS (1)
  1. AVONEX [Suspect]
     Indication: MULTIPLE SCLEROSIS

REACTIONS (7)
  - ASTHENIA [None]
  - BALANCE DISORDER [None]
  - COMPLICATION OF PREGNANCY [None]
  - FALL [None]
  - MOBILITY DECREASED [None]
  - UNEVALUABLE EVENT [None]
  - VISUAL DISTURBANCE [None]
